FAERS Safety Report 9685445 (Version 3)
Quarter: 2014Q1

REPORT INFORMATION
  Report Type: Spontaneous
  Country: US (occurrence: US)
  Receive Date: 20131113
  Receipt Date: 20140109
  Transmission Date: 20141002
  Serious: Yes (Hospitalization)
  Sender: FDA-Public Use
  Company Number: US-BAYER-2013-135216

PATIENT
  Age: 16 Year
  Sex: Female

DRUGS (2)
  1. MIRENA [Suspect]
     Indication: CONTRACEPTION
     Dosage: 20 MCG/24HR, CONT
     Route: 015
     Dates: start: 20091111, end: 20091203
  2. AUGMENTIN [Concomitant]

REACTIONS (10)
  - Anxiety [None]
  - Fear of disease [None]
  - Uterine fibrosis [None]
  - Uterine perforation [None]
  - Injury [None]
  - Pain [None]
  - Emotional distress [None]
  - Menorrhagia [None]
  - Dyspareunia [None]
  - Depression [None]
